FAERS Safety Report 16999262 (Version 1)
Quarter: 2019Q4

REPORT INFORMATION
  Report Type: Spontaneous
  Country: US (occurrence: US)
  Receive Date: 20190925
  Receipt Date: 20190925
  Transmission Date: 20200122
  Serious: No
  Sender: FDA-Public Use
  Company Number: None

PATIENT
  Age: 74 Year
  Sex: Female

DRUGS (25)
  1. COMBIGAN [Concomitant]
     Active Substance: BRIMONIDINE TARTRATE\TIMOLOL MALEATE
  2. CHLESTYRAM [Concomitant]
  3. AMLOD/OLMESA [Concomitant]
  4. LEVEMIR [Concomitant]
     Active Substance: INSULIN DETEMIR
  5. METOPROLOL TARTRATE. [Concomitant]
     Active Substance: METOPROLOL TARTRATE
  6. SYMBICORT [Concomitant]
     Active Substance: BUDESONIDE\FORMOTEROL FUMARATE DIHYDRATE
  7. URSODIOL. [Concomitant]
     Active Substance: URSODIOL
  8. ALPRAZALOM [Concomitant]
  9. CETIRIZINE [Concomitant]
     Active Substance: CETIRIZINE HYDROCHLORIDE
  10. PREDNISONE. [Concomitant]
     Active Substance: PREDNISONE
  11. LUMIGAN [Concomitant]
     Active Substance: BIMATOPROST
  12. NOVOLOG [Concomitant]
     Active Substance: INSULIN ASPART
  13. TOPIRAMATE. [Concomitant]
     Active Substance: TOPIRAMATE
  14. URSODIOL. [Concomitant]
     Active Substance: URSODIOL
  15. OCALIVA [Suspect]
     Active Substance: OBETICHOLIC ACID
     Indication: PRIMARY BILIARY CHOLANGITIS
     Route: 048
     Dates: start: 20190607
  16. ALPRAZOLAM. [Concomitant]
     Active Substance: ALPRAZOLAM
  17. BACLOFEN. [Concomitant]
     Active Substance: BACLOFEN
  18. HUMALOG [Concomitant]
     Active Substance: INSULIN LISPRO
  19. HYDRALAZINE [Concomitant]
     Active Substance: HYDRALAZINE HYDROCHLORIDE
  20. RESTASTIS [Concomitant]
  21. BACLOFEN. [Concomitant]
     Active Substance: BACLOFEN
  22. ATORVASTATIN [Concomitant]
     Active Substance: ATORVASTATIN
  23. HYDROCHLOROT [Concomitant]
     Active Substance: HYDROCHLOROTHIAZIDE
  24. OMEPRAZOLE. [Concomitant]
     Active Substance: OMEPRAZOLE
  25. PRIMIDONE. [Concomitant]
     Active Substance: PRIMIDONE

REACTIONS (6)
  - Liver disorder [None]
  - Gastric disorder [None]
  - Taste disorder [None]
  - Pruritus [None]
  - Arthralgia [None]
  - Fatigue [None]

NARRATIVE: CASE EVENT DATE: 2019
